FAERS Safety Report 24329017 (Version 1)
Quarter: 2024Q3

REPORT INFORMATION
  Report Type: Spontaneous
  Country: US (occurrence: None)
  Receive Date: 20240917
  Receipt Date: 20240917
  Transmission Date: 20241017
  Serious: No
  Sender: ASTRAZENECA
  Company Number: 2024A211315

PATIENT
  Sex: Female

DRUGS (1)
  1. TEZSPIRE [Suspect]
     Active Substance: TEZEPELUMAB-EKKO

REACTIONS (5)
  - Movement disorder [Unknown]
  - Illness [Unknown]
  - Pain [Unknown]
  - Limb discomfort [Unknown]
  - Hypersensitivity [Unknown]
